FAERS Safety Report 8262386-X (Version None)
Quarter: 2012Q2

REPORT INFORMATION
  Report Type: 
  Country: None (occurrence: None)
  Receive Date: 20120405
  Receipt Date: 20120323
  Transmission Date: 20120825
  Serious: Yes (Hospitalization, Other)
  Sender: FDA-Public Use
  Company Number: US-ASTRAZENECA-2011SE78633

PATIENT
  Age: 32 Year
  Sex: Female

DRUGS (2)
  1. SEROQUEL [Suspect]
     Indication: BIPOLAR I DISORDER
     Route: 048
  2. SEROQUEL [Suspect]
     Indication: OBSESSIVE-COMPULSIVE DISORDER
     Route: 048

REACTIONS (22)
  - OVARIAN CYST [None]
  - ENDOMETRIOSIS [None]
  - MIGRAINE [None]
  - BLADDER DISORDER [None]
  - INTERVERTEBRAL DISC PROTRUSION [None]
  - INSOMNIA [None]
  - COLITIS [None]
  - ABNORMAL BEHAVIOUR [None]
  - OFF LABEL USE [None]
  - HOMICIDAL IDEATION [None]
  - BIPOLAR DISORDER [None]
  - BREAST CYST [None]
  - CYST RUPTURE [None]
  - SPINAL OSTEOARTHRITIS [None]
  - INTENTIONAL DRUG MISUSE [None]
  - SUICIDAL BEHAVIOUR [None]
  - DEPRESSION [None]
  - BREAST MASS [None]
  - HEADACHE [None]
  - GENERAL PHYSICAL HEALTH DETERIORATION [None]
  - BIPOLAR I DISORDER [None]
  - ANXIETY [None]
